FAERS Safety Report 5350840-X (Version None)
Quarter: 2007Q2

REPORT INFORMATION
  Report Type: 
  Country: None (occurrence: None)
  Receive Date: 20070606
  Receipt Date: 20070606
  Transmission Date: 20071010
  Serious: Yes (Other)
  Sender: FDA-Public Use
  Company Number: None

PATIENT
  Age: 29 Year
  Sex: Male
  Weight: 81.6475 kg

DRUGS (1)
  1. ENTOCORT EC 9 MG ASTRA ZENECA [Suspect]
     Indication: COLITIS ULCERATIVE
     Dosage: 9 MG DAILY PO
     Route: 048
     Dates: start: 20070405, end: 20070610

REACTIONS (1)
  - INTERNATIONAL NORMALISED RATIO INCREASED [None]
